FAERS Safety Report 6547538-9 (Version None)
Quarter: 2010Q1

REPORT INFORMATION
  Report Type: 
  Country: None (occurrence: None)
  Receive Date: 20100122
  Receipt Date: 20100112
  Transmission Date: 20100710
  Serious: Yes (Other)
  Sender: FDA-Public Use
  Company Number: US-JNJFOC-20100104434

PATIENT
  Age: 75 Year
  Sex: Female

DRUGS (2)
  1. ACETAMINOPHEN [Suspect]
  2. ACETAMINOPHEN [Suspect]
     Indication: ARTHRALGIA

REACTIONS (1)
  - SCHAMBERG'S DISEASE [None]
